FAERS Safety Report 9777638 (Version 2)
Quarter: 2013Q4

REPORT INFORMATION
  Report Type: Spontaneous
  Country: SE (occurrence: SE)
  Receive Date: 20131223
  Receipt Date: 20131223
  Transmission Date: 20140711
  Serious: Yes (Hospitalization, Other)
  Sender: FDA-Public Use
  Company Number: SE-TEVA-319232ISR

PATIENT
  Age: 60 Year
  Sex: Female
  Weight: 46 kg

DRUGS (8)
  1. COPAXONE [Suspect]
     Indication: MULTIPLE SCLEROSIS
     Dosage: 20 MILLIGRAM DAILY;
     Route: 058
     Dates: start: 20011218, end: 20120112
  2. BEHEPAN [Concomitant]
     Dates: start: 2002
  3. BAKLOFEN MYLAN [Concomitant]
     Dates: start: 19991005
  4. FOLACIN [Concomitant]
     Dates: start: 2002
  5. DUROFERON 100 MG FE2+ DEPOTTABLETT [Concomitant]
  6. IDO-C 0,5 G TABLET [Concomitant]
     Dates: start: 19980107
  7. CALCICHEW D3 CITRON 500 MG/400 IE TUGGTABLETT [Concomitant]
     Dates: start: 20041102
  8. EMGESAN 250 MG TABLET [Concomitant]
     Dates: start: 20041102

REACTIONS (1)
  - Amyloidosis [Unknown]
